FAERS Safety Report 5803028-X (Version None)
Quarter: 2008Q3

REPORT INFORMATION
  Report Type: 
  Country: None (occurrence: None)
  Receive Date: 20080708
  Receipt Date: 20080624
  Transmission Date: 20090109
  Serious: No
  Sender: FDA-Public Use
  Company Number: KR-JNJFOC-20080603034

PATIENT
  Age: 7 Decade
  Sex: Male

DRUGS (3)
  1. CONCERTA [Suspect]
     Indication: HEADACHE
     Route: 048
  2. THROMBOLYTIC [Concomitant]
  3. UNSPECIFIED MEDICATION [Concomitant]
     Indication: HYPERTENSION
     Route: 065

REACTIONS (1)
  - OFF LABEL USE [None]
